FAERS Safety Report 9044230 (Version 1)
Quarter: 2013Q1

REPORT INFORMATION
  Report Type: Report from Study
  Country: US (occurrence: US)
  Receive Date: 20130131
  Receipt Date: 20130131
  Transmission Date: 20140127
  Serious: No
  Sender: FDA-Public Use
  Company Number: US-ABBOTT-12P-163-0978412-00

PATIENT
  Age: 55 Year
  Sex: Male

DRUGS (3)
  1. HUMIRA [Suspect]
     Indication: PSORIASIS
     Dates: start: 20120810, end: 20120810
  2. HUMIRA [Suspect]
     Dates: start: 20120818, end: 20120818
  3. HUMIRA [Suspect]
     Dates: start: 20120909

REACTIONS (1)
  - Rhinorrhoea [Not Recovered/Not Resolved]
